FAERS Safety Report 26113344 (Version 1)
Quarter: 2025Q4

REPORT INFORMATION
  Report Type: Spontaneous
  Country: EU (occurrence: EU)
  Receive Date: 20251202
  Receipt Date: 20251202
  Transmission Date: 20260118
  Serious: Yes (Other)
  Sender: AMGEN
  Company Number: EU-AMGEN-ROUSP2025235873

PATIENT
  Age: 56 Year
  Sex: Female

DRUGS (4)
  1. VECTIBIX [Suspect]
     Active Substance: PANITUMUMAB
     Indication: Colorectal adenocarcinoma
     Dosage: 6 MILLIGRAM/KILOGRAM, Q2WK
     Route: 040
     Dates: start: 202209, end: 202506
  2. OXALIPLATIN [Concomitant]
     Active Substance: OXALIPLATIN
     Indication: Colorectal adenocarcinoma
     Dosage: 85 MILLIGRAM/SQ. METER
     Route: 040
     Dates: start: 202209
  3. LEUCOVORIN [Concomitant]
     Active Substance: LEUCOVORIN\LEUCOVORIN CALCIUM
     Indication: Colorectal adenocarcinoma
     Dosage: 200 MILLIGRAM/SQ. METER,  Z1-Z2,
     Route: 040
     Dates: start: 202209
  4. FLUOROURACIL [Concomitant]
     Active Substance: FLUOROURACIL
     Indication: Colorectal adenocarcinoma
     Dosage: 400 MILLIGRAM/SQ. METER,  BOLUS Z1 -Z2, 5FU 600 MG/M2 Z1 -Z2,
     Route: 040
     Dates: start: 202209

REACTIONS (4)
  - Leukopenia [Recovered/Resolved]
  - Hypomagnesaemia [Recovered/Resolved]
  - Skin toxicity [Recovered/Resolved]
  - Neutropenia [Recovered/Resolved]

NARRATIVE: CASE EVENT DATE: 20220101
